FAERS Safety Report 14226734 (Version 1)
Quarter: 2017Q4

REPORT INFORMATION
  Report Type: Spontaneous
  Country: DE (occurrence: DE)
  Receive Date: 20171127
  Receipt Date: 20171127
  Transmission Date: 20180321
  Serious: Yes (Death, Other)
  Sender: FDA-Public Use
  Company Number: DE-TEVA-2017-DE-826799

PATIENT
  Sex: Male

DRUGS (3)
  1. ANTITHYMOCYTE IMMUNOGLOBULIN [Suspect]
     Active Substance: THYMOCYTE IMMUNE GLOBULIN NOS
     Indication: ACUTE LYMPHOCYTIC LEUKAEMIA
     Route: 065
  2. FLUDARABINE [Suspect]
     Active Substance: FLUDARABINE PHOSPHATE
     Indication: ACUTE LYMPHOCYTIC LEUKAEMIA
     Route: 065
  3. CYCLOPHOSPHAMIDE. [Suspect]
     Active Substance: CYCLOPHOSPHAMIDE
     Indication: ACUTE LYMPHOCYTIC LEUKAEMIA
     Route: 065

REACTIONS (13)
  - Apnoea [Unknown]
  - Graft versus host disease [Unknown]
  - Respiratory paralysis [Fatal]
  - Corona virus infection [Unknown]
  - Coma [Unknown]
  - Muscular weakness [Unknown]
  - Catatonia [Unknown]
  - Cytomegalovirus infection [Unknown]
  - Encephalitis [Unknown]
  - Loss of consciousness [Unknown]
  - BK virus infection [Unknown]
  - Cystitis haemorrhagic [Unknown]
  - Apathy [Unknown]
